FAERS Safety Report 13781563 (Version 1)
Quarter: 2017Q3

REPORT INFORMATION
  Report Type: Report from Study
  Country: AR (occurrence: AR)
  Receive Date: 20170724
  Receipt Date: 20170724
  Transmission Date: 20171127
  Serious: Yes (Other)
  Sender: FDA-Public Use
  Company Number: PHHY2017AR108217

PATIENT
  Sex: Female

DRUGS (1)
  1. DIOVAN [Suspect]
     Active Substance: VALSARTAN
     Indication: PRODUCT USED FOR UNKNOWN INDICATION
     Dosage: 0.5 DF (160, UNITS NOT PROVIDED), QD
     Route: 065

REACTIONS (3)
  - Drug prescribing error [Unknown]
  - Wrong technique in product usage process [Unknown]
  - Coeliac disease [Unknown]
